FAERS Safety Report 9088260 (Version 1)
Quarter: 2013Q1

REPORT INFORMATION
  Report Type: Report from Study
  Country: US (occurrence: US)
  Receive Date: 20130201
  Receipt Date: 20130201
  Transmission Date: 20140127
  Serious: No
  Sender: FDA-Public Use
  Company Number: US-ABBOTT-12P-163-1020540-00

PATIENT
  Age: 58 Year
  Sex: Female
  Weight: 50.39 kg

DRUGS (10)
  1. HUMIRA [Suspect]
     Indication: RHEUMATOID ARTHRITIS
     Dates: start: 20121116
  2. METHOTREXATE [Concomitant]
     Indication: RHEUMATOID ARTHRITIS
  3. FOLIC ACID [Concomitant]
     Indication: RHEUMATOID ARTHRITIS
  4. TRAZADONE [Concomitant]
     Indication: INSOMNIA
  5. SIMVASTATIN [Concomitant]
     Indication: BLOOD CHOLESTEROL INCREASED
     Dosage: AT BEDTIME
  6. PRILOSEC [Concomitant]
     Indication: HIATUS HERNIA
  7. HYDROCODONE/ACETAMINOPHEN [Concomitant]
     Indication: ARTHRALGIA
  8. SOMA [Concomitant]
     Indication: MUSCLE SPASMS
     Dosage: ONCE AT BEDTIME
  9. NICORETTE [Concomitant]
     Indication: EX-TOBACCO USER
     Dates: start: 201211
  10. LEVOCETIRIZINE [Concomitant]
     Dosage: ONCE IN THE AM

REACTIONS (7)
  - Epistaxis [Not Recovered/Not Resolved]
  - Diarrhoea [Not Recovered/Not Resolved]
  - Nausea [Not Recovered/Not Resolved]
  - Nasopharyngitis [Not Recovered/Not Resolved]
  - Sinus congestion [Not Recovered/Not Resolved]
  - Rhinorrhoea [Not Recovered/Not Resolved]
  - Sinusitis [Not Recovered/Not Resolved]
